FAERS Safety Report 6814689-0 (Version None)
Quarter: 2010Q3

REPORT INFORMATION
  Report Type: 
  Country: None (occurrence: None)
  Receive Date: 20100701
  Receipt Date: 20100701
  Transmission Date: 20110219
  Serious: Yes (Other)
  Sender: FDA-Public Use
  Company Number: None

PATIENT
  Age: 59 Year
  Sex: Female
  Weight: 124.7392 kg

DRUGS (2)
  1. NEOSPORIN [Suspect]
     Indication: SCRATCH
     Dosage: FINGERTIP USED 1
     Dates: start: 20100526
  2. NEOSPORIN [Suspect]
     Indication: ULCER
     Dosage: FINGERTIP USED 1
     Dates: start: 20100526

REACTIONS (4)
  - CHEMICAL INJURY [None]
  - DRY SKIN [None]
  - PRURITUS [None]
  - SKIN MASS [None]
